FAERS Safety Report 5248699-4 (Version None)
Quarter: 2007Q1

REPORT INFORMATION
  Report Type: 
  Country: None (occurrence: None)
  Receive Date: 20070228
  Receipt Date: 20061101
  Transmission Date: 20070707
  Serious: Yes (Hospitalization)
  Sender: FDA-Public Use
  Company Number: US-GLAXOSMITHKLINE-A0625838A

PATIENT
  Age: 25 Year
  Sex: Male

DRUGS (5)
  1. ARRANON [Suspect]
     Dosage: 1500MGM2 CYCLIC
     Route: 042
     Dates: start: 20061027
  2. MICAFUNGIN [Concomitant]
  3. AUGMENTIN '125' [Concomitant]
  4. ALLOPURINOL SODIUM [Concomitant]
  5. KYTRIL [Concomitant]

REACTIONS (1)
  - SOMNOLENCE [None]
